FAERS Safety Report 8518471 (Version 3)
Quarter: 2013Q2

REPORT INFORMATION
  Report Type: Spontaneous
  Country: US (occurrence: US)
  Receive Date: 20120417
  Receipt Date: 20130515
  Transmission Date: 20140414
  Serious: No
  Sender: FDA-Public Use
  Company Number: US-ASTRAZENECA-2011SE19721

PATIENT
  Age: 72 Year
  Sex: Female

DRUGS (2)
  1. NEXIUM [Suspect]
     Indication: ULCER
     Route: 048
  2. NEXIUM [Suspect]
     Indication: FLATULENCE
     Route: 048

REACTIONS (4)
  - Diverticulitis [Unknown]
  - Hiatus hernia [Unknown]
  - Gastric ulcer [Unknown]
  - Drug dose omission [Unknown]
